FAERS Safety Report 7479068-4 (Version None)
Quarter: 2011Q2

REPORT INFORMATION
  Report Type: 
  Country: None (occurrence: None)
  Receive Date: 20110513
  Receipt Date: 20110506
  Transmission Date: 20111010
  Serious: Yes (Other)
  Sender: FDA-Public Use
  Company Number: FR-SANOFI-AVENTIS-2011SA029236

PATIENT
  Age: 66 Year
  Sex: Female

DRUGS (2)
  1. TAXOTERE [Suspect]
     Indication: METASTASES TO LUNG
  2. GEMCITABINE [Concomitant]
     Indication: METASTASES TO LUNG

REACTIONS (1)
  - SYSTEMIC LUPUS ERYTHEMATOSUS [None]
